FAERS Safety Report 10862447 (Version 1)
Quarter: 2015Q1

REPORT INFORMATION
  Report Type: Spontaneous
  Country: US (occurrence: None)
  Receive Date: 20150219
  Receipt Date: 20150219
  Transmission Date: 20150721
  Serious: Yes (Hospitalization)
  Sender: FDA-Public Use
  Company Number: 54973 AE # 1593

PATIENT
  Age: 45 Year
  Sex: Female
  Weight: 71.35 kg

DRUGS (1)
  1. HYLAND^S RESTFULL LEGS TABLETS [Suspect]
     Active Substance: HOMEOPATHICS
     Indication: DYSKINESIA

REACTIONS (3)
  - Mydriasis [None]
  - Confusional state [None]
  - Disorientation [None]

NARRATIVE: CASE EVENT DATE: 20150121
